FAERS Safety Report 5952317-7 (Version None)
Quarter: 2008Q4

REPORT INFORMATION
  Report Type: 
  Country: None (occurrence: None)
  Receive Date: 20081113
  Receipt Date: 20081104
  Transmission Date: 20090506
  Serious: Yes (Other)
  Sender: FDA-Public Use
  Company Number: US-ABBOTT-08P-163-0485341-00

PATIENT
  Sex: Male
  Weight: 72.64 kg

DRUGS (10)
  1. HUMIRA [Suspect]
     Indication: RHEUMATOID ARTHRITIS
     Route: 058
     Dates: start: 20070813
  2. HUMIRA [Suspect]
     Route: 058
     Dates: end: 20081001
  3. HUMIRA [Suspect]
     Route: 058
     Dates: start: 20081001
  4. ACETYLSALICYLIC ACID SRT [Concomitant]
     Indication: CARDIAC DISORDER
     Route: 048
  5. DILITIZIN [Concomitant]
     Indication: CARDIAC DISORDER
     Route: 048
  6. CLOPIDOGREL [Concomitant]
     Indication: CARDIAC DISORDER
     Route: 048
  7. MONTELUKAST SODIUM [Concomitant]
     Indication: DRUG USE FOR UNKNOWN INDICATION
     Route: 048
  8. THEOPHYLLINE [Concomitant]
     Indication: DRUG USE FOR UNKNOWN INDICATION
     Route: 048
  9. ACETAMINOPHEN W/ PROPOXYPHENE HCL [Concomitant]
     Indication: PAIN
     Dosage: AS REQUIRED
  10. NITROGLYCERIN [Concomitant]
     Indication: DRUG USE FOR UNKNOWN INDICATION
     Dosage: AS REQUIRED

REACTIONS (2)
  - CORONARY ARTERY OCCLUSION [None]
  - DRUG DELIVERY SYSTEM MALFUNCTION [None]
